FAERS Safety Report 20883314 (Version 1)
Quarter: 2022Q2

REPORT INFORMATION
  Report Type: Spontaneous
  Country: US (occurrence: None)
  Receive Date: 20220527
  Receipt Date: 20220527
  Transmission Date: 20220721
  Serious: Yes (Other)
  Sender: FDA-Public Use
  Company Number: 2022A194534

PATIENT
  Sex: Female

DRUGS (2)
  1. CRESTOR [Suspect]
     Active Substance: ROSUVASTATIN CALCIUM
     Indication: Arteriosclerosis
     Dosage: 10.0MG UNKNOWN
     Route: 048
  2. CRESTOR [Suspect]
     Active Substance: ROSUVASTATIN CALCIUM
     Indication: Arteriosclerosis
     Dosage: 10.0MG UNKNOWN
     Route: 048

REACTIONS (13)
  - Blood pressure increased [Unknown]
  - Blood thyroid stimulating hormone increased [Unknown]
  - Pain [Unknown]
  - Limb injury [Unknown]
  - Rotator cuff syndrome [Unknown]
  - Tendon rupture [Unknown]
  - Periarthritis [Unknown]
  - Renal disorder [Unknown]
  - Lipids abnormal [Unknown]
  - Arthralgia [Unknown]
  - Memory impairment [Unknown]
  - Blood cholesterol increased [Unknown]
  - Swollen tongue [Unknown]
